FAERS Safety Report 9732381 (Version 1)
Quarter: 2013Q4

REPORT INFORMATION
  Report Type: Spontaneous
  Country: US (occurrence: US)
  Receive Date: 20131204
  Receipt Date: 20131204
  Transmission Date: 20140711
  Serious: Yes (Other)
  Sender: FDA-Public Use
  Company Number: US-PFIZER INC-2013345163

PATIENT
  Age: 43 Year
  Sex: Female
  Weight: 83.9 kg

DRUGS (3)
  1. EFFEXOR XR [Suspect]
     Indication: DEPRESSION
     Dosage: 150 MG, 1X/DAY
     Route: 048
     Dates: start: 201309, end: 2013
  2. EFFEXOR XR [Suspect]
     Indication: ANXIETY
  3. LITHIUM [Concomitant]
     Dosage: 2X/DAY (600MG IN THE MORNING AND 300MG AT NIGHT)

REACTIONS (3)
  - Drug withdrawal syndrome [Unknown]
  - Mental disorder [Unknown]
  - Malaise [Unknown]
